FAERS Safety Report 13343167 (Version 1)
Quarter: 2017Q1

REPORT INFORMATION
  Report Type: Spontaneous
  Country: US (occurrence: US)
  Receive Date: 20170316
  Receipt Date: 20170316
  Transmission Date: 20170428
  Serious: No
  Sender: FDA-Public Use
  Company Number: US-ARALEZ PHARMACEUTICALS R+D INC.-ARA-TP-US-2017-111

PATIENT
  Age: 72 Year
  Sex: Female
  Weight: 72.64 kg

DRUGS (6)
  1. LANTUS [Concomitant]
     Active Substance: INSULIN GLARGINE
     Indication: DIABETES MELLITUS
     Route: 058
  2. OPANA [Concomitant]
     Active Substance: OXYMORPHONE HYDROCHLORIDE
     Indication: BACK PAIN
     Route: 048
     Dates: start: 2016
  3. MOVANTIK [Suspect]
     Active Substance: NALOXEGOL OXALATE
     Indication: CONSTIPATION
     Route: 048
     Dates: start: 20170225
  4. DIABETES MEDICINE [Concomitant]
     Indication: DIABETES MELLITUS
     Dosage: TAKEN ON A SLIDING SCALE, BASED ON SUGAR READINGS, DOSAGE BETWEEN 25 MG TO 60 MG IN THE MORNING
     Route: 048
  5. LASIX [Concomitant]
     Active Substance: FUROSEMIDE
     Indication: PRODUCT USED FOR UNKNOWN INDICATION
     Route: 048
  6. METOPROLOL SUCCINATE. [Suspect]
     Active Substance: METOPROLOL SUCCINATE
     Indication: PRODUCT USED FOR UNKNOWN INDICATION
     Route: 048
     Dates: start: 1992

REACTIONS (6)
  - Frequent bowel movements [Not Recovered/Not Resolved]
  - Hypoacusis [Unknown]
  - Body height decreased [Unknown]
  - Flatulence [Not Recovered/Not Resolved]
  - Anxiety [Not Recovered/Not Resolved]
  - Hypercholesterolaemia [Unknown]

NARRATIVE: CASE EVENT DATE: 20170225
